FAERS Safety Report 7466807-1 (Version None)
Quarter: 2011Q2

REPORT INFORMATION
  Report Type: 
  Country: None (occurrence: None)
  Receive Date: 20110509
  Receipt Date: 20110503
  Transmission Date: 20111010
  Serious: Yes (Other)
  Sender: FDA-Public Use
  Company Number: FR-MERCK-1105FRA00015

PATIENT
  Age: 63 Year
  Sex: Female

DRUGS (4)
  1. METFORMIN [Concomitant]
     Indication: TYPE 2 DIABETES MELLITUS
     Route: 048
     Dates: start: 20060101
  2. JANUVIA [Suspect]
     Indication: TYPE 2 DIABETES MELLITUS
     Route: 048
     Dates: start: 20110307, end: 20110310
  3. JANUVIA [Suspect]
     Route: 048
     Dates: start: 20110217, end: 20110225
  4. OMEPRAZOLE [Concomitant]
     Route: 065
     Dates: start: 20010101

REACTIONS (1)
  - BACK PAIN [None]
